FAERS Safety Report 8976761 (Version 2)
Quarter: 2012Q4

REPORT INFORMATION
  Report Type: 
  Country: TR (occurrence: TR)
  Receive Date: 20121220
  Receipt Date: 20121227
  Transmission Date: 20130627
  Serious: Yes (Other)
  Sender: FDA-Public Use
  Company Number: TR-ABBOTT-12P-161-1024626-00

PATIENT
  Age: 50 Year
  Sex: Female

DRUGS (2)
  1. VALPROATE SODIUM [Suspect]
     Indication: MANIA
  2. QUETIAPINE [Concomitant]

REACTIONS (10)
  - Hyperammonaemic encephalopathy [Recovered/Resolved]
  - Confusional state [Unknown]
  - Lethargy [Unknown]
  - Depression [Unknown]
  - Feeling abnormal [Unknown]
  - Stupor [Unknown]
  - Vomiting [Unknown]
  - Somnolence [Unknown]
  - Blood urea increased [Unknown]
  - Ammonia increased [Unknown]
